FAERS Safety Report 15682905 (Version 1)
Quarter: 2018Q4

REPORT INFORMATION
  Report Type: Spontaneous
  Country: US (occurrence: US)
  Receive Date: 20181203
  Receipt Date: 20181203
  Transmission Date: 20190205
  Serious: No
  Sender: FDA-Public Use
  Company Number: US-BAYER-2018-219034

PATIENT
  Age: 24 Year
  Sex: Female

DRUGS (2)
  1. MIRENA [Suspect]
     Active Substance: LEVONORGESTREL
     Indication: GENITAL HAEMORRHAGE
     Dosage: 20 MCG/24HR, CONT
     Route: 015
     Dates: start: 20121121, end: 20181121
  2. MIRENA [Suspect]
     Active Substance: LEVONORGESTREL
     Indication: GENITAL HAEMORRHAGE

REACTIONS (5)
  - Off label use of device [None]
  - Complication of device removal [None]
  - Device use issue [None]
  - Device issue [None]
  - Device use issue [None]

NARRATIVE: CASE EVENT DATE: 20121121
